FAERS Safety Report 10420863 (Version 1)
Quarter: 2014Q3

REPORT INFORMATION
  Report Type: Spontaneous
  Country: US (occurrence: None)
  Receive Date: 20140829
  Receipt Date: 20140829
  Transmission Date: 20150326
  Serious: Yes (Hospitalization)
  Sender: FDA-Public Use
  Company Number: None

PATIENT
  Age: 61 Year
  Sex: Female

DRUGS (3)
  1. SOVALDI [Suspect]
     Active Substance: SOFOSBUVIR
     Dosage: 1 TABLET
     Route: 048
     Dates: start: 20140707
  2. SILDENAFIL CITRATE. [Concomitant]
     Active Substance: SILDENAFIL CITRATE
  3. OLYSIO [Concomitant]
     Active Substance: SIMEPREVIR

REACTIONS (2)
  - Hypertension [None]
  - Syncope [None]

NARRATIVE: CASE EVENT DATE: 20140819
